FAERS Safety Report 8620898-0 (Version None)
Quarter: 2012Q3

REPORT INFORMATION
  Report Type: 
  Country: None (occurrence: None)
  Receive Date: 20120824
  Receipt Date: 20120817
  Transmission Date: 20120928
  Serious: Yes (Other)
  Sender: FDA-Public Use
  Company Number: PHHY2012BR071672

PATIENT
  Sex: Male

DRUGS (1)
  1. BUFFERIN [Suspect]
     Indication: CARDIAC DISORDER
     Dosage: 1 DF, DAILY

REACTIONS (1)
  - ARTERIAL OCCLUSIVE DISEASE [None]
